FAERS Safety Report 7237223-2 (Version None)
Quarter: 2011Q1

REPORT INFORMATION
  Report Type: 
  Country: None (occurrence: None)
  Receive Date: 20110121
  Receipt Date: 20110110
  Transmission Date: 20110831
  Serious: Yes (Death, Hospitalization, Other)
  Sender: FDA-Public Use
  Company Number: US-ELI_LILLY_AND_COMPANY-US201012000662

PATIENT
  Sex: Female
  Weight: 54 kg

DRUGS (25)
  1. LECITHIN [Concomitant]
     Dosage: 400 MG, DAILY (1/D)
     Route: 048
  2. LECITHIN [Concomitant]
     Dosage: 400 MG, EACH EVENING
  3. METAMIZOL [Concomitant]
     Indication: BLOOD THYROID STIMULATING HORMONE DECREASED
     Dosage: 5 MG, DAILY (1/D)
     Route: 048
  4. CARVEDILOL [Concomitant]
     Dosage: 25 MG, 1/4 TABLETES
  5. MECLIZINE [Concomitant]
     Indication: DIZZINESS
     Dosage: 12.5 MG, HALF TABLET TWICE DAILY
     Route: 048
  6. CALCIUM CITRATE [Concomitant]
     Indication: BONE DISORDER
     Dosage: 315 MG, UNK
  7. MULTI-VITAMIN [Concomitant]
     Dosage: 1 D/F, DAILY (1/D)
  8. PAXIL [Concomitant]
     Indication: ANXIETY
     Dosage: 20 MG, 1/2 TABLET DAILY
     Route: 048
  9. CARVEDILOL [Concomitant]
     Indication: BLOOD PRESSURE
     Dosage: 25 MG, 1/4 TAB 2D
  10. ASPIRIN [Concomitant]
     Indication: ANTICOAGULANT THERAPY
     Dosage: 81 MG, DAILY (1/D)
  11. ARICEPT [Concomitant]
     Indication: MEMORY IMPAIRMENT
     Dosage: 5 MG, 2/D 1/2 TABLET
  12. FLAXSEED OIL /01649403/ [Concomitant]
     Dosage: 1000 MG, 2/D (EVENING AS WELL)
  13. SENNALAX /00571901/ [Concomitant]
     Dosage: 2 TABLETS MAX OR  AS NEEDED
  14. LASIX [Concomitant]
     Indication: FLUID RETENTION
     Dosage: 20 MG, UNK
  15. GINKO BILOBA [Concomitant]
     Dosage: 120 MG, UNK
  16. SUPER B COMPLEX [Concomitant]
     Dosage: 1 D/F, DAILY (1/D)
     Route: 048
  17. VITAMIN D [Concomitant]
     Dosage: 50000 IU, MONTHLY (1/M)
  18. WARFARIN [Concomitant]
     Indication: ANTICOAGULANT THERAPY
     Dosage: 5 OR 10 MG, VARIABLE
     Route: 048
  19. FORTEO [Suspect]
     Indication: OSTEOPOROSIS
     Dosage: 20 UG, DAILY (1/D)
     Dates: start: 20090701
  20. ACETAMINOPHEN W/ CODEINE [Concomitant]
     Dosage: 1 D/F, UNK
  21. FLAXSEED OIL /01649403/ [Concomitant]
     Dosage: 1000 MG, EACH EVENING
  22. MULTIVITAMIN [Concomitant]
     Indication: VITAMIN SUPPLEMENTATION
     Dosage: 1 D/F, DAILY (1/D)
  23. LISINOPRIL [Concomitant]
     Dosage: 5 MG, DAILY (1/D) 1/2 TABLET
     Route: 048
  24. GARLIC [Concomitant]
     Dosage: 1000 MG, DAILY (1/D)
     Route: 048
  25. ZOCOR [Concomitant]
     Indication: BLOOD CHOLESTEROL DECREASED
     Dosage: 40 MG, DAILY (1/D)

REACTIONS (6)
  - RESPIRATORY FAILURE [None]
  - CARDIAC FAILURE [None]
  - RESPIRATORY DISTRESS [None]
  - PNEUMONIA [None]
  - PNEUMONIA ASPIRATION [None]
  - CARDIAC VALVE DISEASE [None]
